FAERS Safety Report 21407447 (Version 1)
Quarter: 2022Q4

REPORT INFORMATION
  Report Type: Spontaneous
  Country: US (occurrence: US)
  Receive Date: 20221004
  Receipt Date: 20221004
  Transmission Date: 20230113
  Serious: Yes (Other)
  Sender: FDA-Public Use
  Company Number: US-drreddys-LIT/USA/22/0155311

PATIENT
  Age: 56 Year
  Sex: Female

DRUGS (5)
  1. MERCAPTOPURINE [Suspect]
     Active Substance: MERCAPTOPURINE
     Indication: Colitis microscopic
  2. BUDESONIDE [Suspect]
     Active Substance: BUDESONIDE
     Indication: Colitis microscopic
  3. PREDNISONE [Suspect]
     Active Substance: PREDNISONE
     Indication: Colitis microscopic
  4. MESALAMINE [Suspect]
     Active Substance: MESALAMINE
     Indication: Colitis microscopic
  5. OCTREOTIDE [Suspect]
     Active Substance: OCTREOTIDE
     Indication: Colitis microscopic

REACTIONS (1)
  - Drug ineffective for unapproved indication [Unknown]
